FAERS Safety Report 24237124 (Version 2)
Quarter: 2024Q4

REPORT INFORMATION
  Report Type: Spontaneous
  Country: US (occurrence: US)
  Receive Date: 20240822
  Receipt Date: 20241101
  Transmission Date: 20250115
  Serious: No
  Sender: NOVARTIS
  Company Number: US-002147023-NVSC2024US169485

PATIENT
  Sex: Male

DRUGS (1)
  1. KESIMPTA [Suspect]
     Active Substance: OFATUMUMAB
     Indication: Product used for unknown indication
     Dosage: 20 MG
     Route: 065

REACTIONS (7)
  - Skin disorder [Unknown]
  - Weight decreased [Unknown]
  - Pain [Unknown]
  - Back pain [Unknown]
  - Gait disturbance [Unknown]
  - Arthralgia [Unknown]
  - Neck pain [Unknown]
